FAERS Safety Report 17334017 (Version 1)
Quarter: 2020Q1

REPORT INFORMATION
  Report Type: Spontaneous
  Country: CA (occurrence: CA)
  Receive Date: 20200128
  Receipt Date: 20200128
  Transmission Date: 20200409
  Serious: Yes (Hospitalization, Other)
  Sender: FDA-Public Use
  Company Number: CA-AUROBINDO-AUR-APL-2020-003997

PATIENT
  Age: 48 Year
  Sex: Male

DRUGS (5)
  1. AFINITOR [Suspect]
     Active Substance: EVEROLIMUS
     Indication: PANCREATIC NEUROENDOCRINE TUMOUR
     Dosage: 10 MILLIGRAM, ONCE A DAY
     Route: 048
  2. PROCHLORPERAZINE. [Concomitant]
     Active Substance: PROCHLORPERAZINE
     Indication: PRODUCT USED FOR UNKNOWN INDICATION
     Dosage: 10.0 MILLIGRAM, FOUR TIMES/DAY
     Route: 048
  3. AMLODIPINE [Suspect]
     Active Substance: AMLODIPINE BESYLATE
     Indication: PRODUCT USED FOR UNKNOWN INDICATION
     Dosage: UNK
     Route: 048
  4. SANDOSTATIN [Suspect]
     Active Substance: OCTREOTIDE ACETATE
     Indication: CARCINOID TUMOUR
     Dosage: 30.0 MILLIGRAM 1 EVERY 1 MONTH
     Route: 030
  5. LOPERAMIDE [Concomitant]
     Active Substance: LOPERAMIDE
     Indication: PRODUCT USED FOR UNKNOWN INDICATION
     Dosage: 4.0 MILLIGRAM
     Route: 048

REACTIONS (20)
  - Bowel movement irregularity [Unknown]
  - Mouth ulceration [Unknown]
  - Weight decreased [Unknown]
  - Abdominal pain [Unknown]
  - Stress [Unknown]
  - Blood pressure increased [Unknown]
  - Myalgia [Unknown]
  - Pain [Unknown]
  - Abscess [Unknown]
  - Constipation [Unknown]
  - Abdominal distension [Unknown]
  - Back pain [Unknown]
  - Swelling [Unknown]
  - Tachycardia [Unknown]
  - Headache [Unknown]
  - Dizziness [Unknown]
  - Dry mouth [Unknown]
  - Flatulence [Unknown]
  - Oedema peripheral [Unknown]
  - Increased appetite [Unknown]
